FAERS Safety Report 5146325-6 (Version None)
Quarter: 2006Q4

REPORT INFORMATION
  Report Type: 
  Country: None (occurrence: None)
  Receive Date: 20061102
  Receipt Date: 20061023
  Transmission Date: 20070319
  Serious: Yes (Other)
  Sender: FDA-Public Use
  Company Number: 2006118187

PATIENT
  Age: 85 Year
  Sex: Female

DRUGS (7)
  1. NORVASC [Suspect]
     Dosage: 5 MG, ORAL
     Route: 048
     Dates: start: 20010710, end: 20060918
  2. NORVASC [Suspect]
     Dosage: 5 MG, ORAL
     Route: 048
     Dates: start: 20060920
  3. SIGMART (NICORANDIL) [Concomitant]
  4. NEUQUINON (UBIDECARENONE) [Concomitant]
  5. GASTROM (ECABET MONOSODIUM) [Concomitant]
  6. PRAVASTATIN [Concomitant]
  7. ASPIRIN [Concomitant]

REACTIONS (11)
  - ANGINA PECTORIS [None]
  - ATRIOVENTRICULAR BLOCK SECOND DEGREE [None]
  - CAROTID ARTERY STENOSIS [None]
  - EXTRASYSTOLES [None]
  - GASTROENTERITIS [None]
  - HYPERLIPIDAEMIA [None]
  - HYPERTENSIVE HEART DISEASE [None]
  - SICK SINUS SYNDROME [None]
  - SINUS ARREST [None]
  - SUPRAVENTRICULAR EXTRASYSTOLES [None]
  - VENTRICULAR EXTRASYSTOLES [None]
